FAERS Safety Report 21950028 (Version 1)
Quarter: 2023Q1

REPORT INFORMATION
  Report Type: Spontaneous
  Country: US (occurrence: US)
  Receive Date: 20230203
  Receipt Date: 20230203
  Transmission Date: 20230417
  Serious: No
  Sender: FDA-Public Use
  Company Number: US-MYLANLABS-2023M1010189

PATIENT
  Age: 43 Year
  Sex: Female

DRUGS (1)
  1. SEMGLEE (INSULIN GLARGINE-YFGN) [Suspect]
     Active Substance: INSULIN GLARGINE-YFGN
     Indication: Type 2 diabetes mellitus
     Dosage: START: 24-JAN-2023, 30 INTERNATIONAL UNIT, BID
     Route: 058

REACTIONS (6)
  - Device issue [Unknown]
  - Malaise [Unknown]
  - Illness [Unknown]
  - Weight abnormal [Unknown]
  - Stress [Unknown]
  - Injection site atrophy [Unknown]

NARRATIVE: CASE EVENT DATE: 20230101
